FAERS Safety Report 14416696 (Version 1)
Quarter: 2018Q1

REPORT INFORMATION
  Report Type: Spontaneous
  Country: US (occurrence: US)
  Receive Date: 20180122
  Receipt Date: 20180122
  Transmission Date: 20180509
  Serious: Yes (Other)
  Sender: FDA-Public Use
  Company Number: US-ROCHE-2058483

PATIENT
  Sex: Female

DRUGS (7)
  1. DIOVAN [Concomitant]
     Active Substance: VALSARTAN
  2. FISH OIL [Concomitant]
     Active Substance: FISH OIL
  3. ESBRIET [Suspect]
     Active Substance: PIRFENIDONE
     Indication: IDIOPATHIC PULMONARY FIBROSIS
     Route: 048
     Dates: start: 20170620
  4. AMLODIPINE BESYLATE. [Concomitant]
     Active Substance: AMLODIPINE BESYLATE
  5. METFORMIN HYDROCHLORIDE. [Concomitant]
     Active Substance: METFORMIN HYDROCHLORIDE
     Route: 065
  6. BREO ELLIPTA [Concomitant]
     Active Substance: FLUTICASONE FUROATE\VILANTEROL TRIFENATATE
  7. AMOXICILLIN. [Concomitant]
     Active Substance: AMOXICILLIN

REACTIONS (2)
  - Rheumatoid arthritis [Unknown]
  - Pain in extremity [Unknown]
